FAERS Safety Report 8563903-2 (Version None)
Quarter: 2012Q3

REPORT INFORMATION
  Report Type: 
  Country: None (occurrence: None)
  Receive Date: 20120727
  Receipt Date: 20120727
  Transmission Date: 20120928
  Serious: Yes (Hospitalization)
  Sender: FDA-Public Use
  Company Number: None

PATIENT
  Age: 84 Year
  Sex: Female
  Weight: 62.1428 kg

DRUGS (1)
  1. GALANTAMINE ER 8MG [Suspect]
     Indication: DEMENTIA
     Dosage: 1 TAB ONCE A DAY
     Dates: start: 20120719, end: 20120721

REACTIONS (10)
  - SYNCOPE [None]
  - ABDOMINAL PAIN UPPER [None]
  - HEART RATE IRREGULAR [None]
  - CONFUSIONAL STATE [None]
  - MOOD ALTERED [None]
  - TREMOR [None]
  - FATIGUE [None]
  - HYPERHIDROSIS [None]
  - LOSS OF CONSCIOUSNESS [None]
  - HEADACHE [None]
